FAERS Safety Report 8322542-9 (Version None)
Quarter: 2012Q2

REPORT INFORMATION
  Report Type: 
  Country: None (occurrence: None)
  Receive Date: 20120430
  Receipt Date: 20120416
  Transmission Date: 20120825
  Serious: Yes (Hospitalization, Other)
  Sender: FDA-Public Use
  Company Number: US-MYLANLABS-2012S1008737

PATIENT
  Sex: Female
  Weight: 50.5 kg

DRUGS (7)
  1. ALDACTONE [Concomitant]
  2. LISINOPRIL [Concomitant]
  3. LOPRESSOR [Concomitant]
  4. DIGOXIN [Suspect]
     Route: 048
  5. PROCRIT /00909301/ [Concomitant]
     Dosage: INJECTION
  6. LASIX [Concomitant]
  7. PRAVASTATIN [Concomitant]

REACTIONS (21)
  - NAUSEA [None]
  - MITRAL VALVE INCOMPETENCE [None]
  - HYPONATRAEMIA [None]
  - LABORATORY TEST ABNORMAL [None]
  - DIZZINESS [None]
  - TOXICITY TO VARIOUS AGENTS [None]
  - ANAEMIA [None]
  - DEHYDRATION [None]
  - CARDIAC VALVE DISEASE [None]
  - CONGESTIVE CARDIOMYOPATHY [None]
  - HYPERTENSIVE HEART DISEASE [None]
  - HYPOVOLAEMIA [None]
  - RENAL FAILURE ACUTE [None]
  - BRADYCARDIA [None]
  - CARDIAC MURMUR [None]
  - HYPOPHAGIA [None]
  - ASTHENIA [None]
  - PULMONARY HYPERTENSION [None]
  - CARDIOACTIVE DRUG LEVEL INCREASED [None]
  - HYPERKALAEMIA [None]
  - PRESYNCOPE [None]
